FAERS Safety Report 5146682-0 (Version None)
Quarter: 2006Q4

REPORT INFORMATION
  Report Type: 
  Country: None (occurrence: None)
  Receive Date: 20061107
  Receipt Date: 20061107
  Transmission Date: 20070319
  Serious: Yes (Hospitalization, Disabling)
  Sender: FDA-Public Use
  Company Number: None

PATIENT
  Age: 96 Year
  Sex: Female
  Weight: 57.9 kg

DRUGS (13)
  1. IODIXANOL 320 MGL/ML AMERSHAM HEALTH [Suspect]
     Indication: SCAN WITH CONTRAST
     Dosage: 150ML ONCE IV BOLUS
     Route: 040
     Dates: start: 20060406, end: 20060406
  2. PIPERCILLIN/TAZOBACTAM [Concomitant]
  3. VANCOMYCIN [Concomitant]
  4. ESOMEPRAZOLE MAGNESIUM [Concomitant]
  5. LEVOTHYROXINE SODIUM [Concomitant]
  6. ACETAMINOPHEN [Concomitant]
  7. ASPIRIN [Concomitant]
  8. SENNA [Concomitant]
  9. DOCUSATE [Concomitant]
  10. DIGOXIN [Concomitant]
  11. AMLODIPINE [Concomitant]
  12. ERYTHROPOETIN [Concomitant]
  13. ALBUTEROL/IPRATROPIUM NEBULIZERS [Concomitant]

REACTIONS (3)
  - BLOOD CREATININE INCREASED [None]
  - CONTRAST MEDIA REACTION [None]
  - RENAL FAILURE ACUTE [None]
